FAERS Safety Report 9557477 (Version 1)
Quarter: 2013Q3

REPORT INFORMATION
  Report Type: Spontaneous
  Country: US (occurrence: None)
  Receive Date: 20130726
  Receipt Date: 20130726
  Transmission Date: 20140515
  Serious: Yes (Hospitalization)
  Sender: FDA-Public Use
  Company Number: UTC-019901

PATIENT
  Age: 73 Year
  Sex: Female

DRUGS (2)
  1. TYVASO [Suspect]
     Indication: PULMONARY ARTERIAL HYPERTENSION
     Dosage: (18 MCG, 4 IN 1 D)
     Route: 055
     Dates: start: 20111109
  2. DIURETICS (DIURETICS) [Concomitant]

REACTIONS (2)
  - Pneumonia [None]
  - Malaise [None]
